FAERS Safety Report 7641761-8 (Version None)
Quarter: 2011Q3

REPORT INFORMATION
  Report Type: 
  Country: None (occurrence: None)
  Receive Date: 20110728
  Receipt Date: 20110722
  Transmission Date: 20111222
  Serious: Yes (Life-Threatening, Hospitalization)
  Sender: FDA-Public Use
  Company Number: JP-ROCHE-621489

PATIENT
  Sex: Female
  Weight: 38.7 kg

DRUGS (17)
  1. METHOTREXATE [Suspect]
     Dosage: TEMPORARILY INTERRUPTED
     Route: 048
     Dates: start: 20090402, end: 20100407
  2. AMBROXOL HYDROCHLORIDE [Concomitant]
     Route: 048
     Dates: start: 20070719, end: 20090311
  3. FOLIC ACID [Concomitant]
     Route: 048
     Dates: start: 20090404
  4. ATORVASTATIN CALCIUM [Concomitant]
     Route: 048
     Dates: start: 20040323, end: 20090311
  5. PREDNISOLONE [Concomitant]
     Route: 048
     Dates: start: 20100407
  6. FOLIC ACID [Concomitant]
     Route: 048
     Dates: start: 20081210, end: 20090311
  7. SALMETEROL XINAFOATE [Concomitant]
     Dates: start: 20080410
  8. CARBOCISTEINE [Concomitant]
     Route: 048
     Dates: start: 20070719, end: 20090311
  9. LOXOPROFEN SODIUM [Concomitant]
     Route: 048
     Dates: start: 20081023, end: 20090311
  10. BENPROPERINE PHOSPHATE [Concomitant]
     Route: 048
     Dates: start: 20070809, end: 20090311
  11. OCRELIZUMAB [Suspect]
     Indication: RHEUMATOID ARTHRITIS
     Dosage: LAST DOSE PRIOR TO SAE RECEIVED ON 25 DEC 2008
     Route: 042
     Dates: start: 20081211
  12. METHOTREXATE [Suspect]
     Route: 048
     Dates: start: 20051129, end: 20090311
  13. OMEPRAZOLE [Concomitant]
     Dates: start: 20090312
  14. ALENDRONATE SODIUM [Concomitant]
     Dates: start: 20070115
  15. TOCILIZUMAB [Suspect]
     Indication: RHEUMATOID ARTHRITIS
     Route: 042
     Dates: start: 20090212, end: 20090305
  16. PREDNISOLONE [Concomitant]
     Route: 048
     Dates: start: 20070724, end: 20090311
  17. SULPHAMETHOXAZOLE/TRIMETHOPRIM [Concomitant]
     Dates: start: 20090312

REACTIONS (3)
  - BRONCHOPNEUMONIA [None]
  - INTERSTITIAL LUNG DISEASE [None]
  - PNEUMONIA BACTERIAL [None]
